FAERS Safety Report 6161373-5 (Version None)
Quarter: 2009Q2

REPORT INFORMATION
  Report Type: 
  Country: None (occurrence: None)
  Receive Date: 20090421
  Receipt Date: 20090420
  Transmission Date: 20091009
  Serious: Yes (Hospitalization)
  Sender: FDA-Public Use
  Company Number: US-BAYER-200910779BCC

PATIENT
  Age: 61 Year
  Sex: Female

DRUGS (2)
  1. ASPIRIN [Suspect]
     Indication: CEREBROVASCULAR ACCIDENT
     Route: 048
  2. PLAVIX [Suspect]
     Indication: CEREBROVASCULAR ACCIDENT
     Dosage: TOTAL DAILY DOSE: 75 MG  UNIT DOSE: 75 MG
     Route: 048
     Dates: start: 20060906

REACTIONS (2)
  - CHRONIC OBSTRUCTIVE PULMONARY DISEASE [None]
  - RESPIRATORY DISORDER [None]
